FAERS Safety Report 4832506-5 (Version None)
Quarter: 2005Q4

REPORT INFORMATION
  Report Type: 
  Country: None (occurrence: None)
  Receive Date: 20051121
  Receipt Date: 20051114
  Transmission Date: 20060501
  Serious: Yes (Hospitalization, Other)
  Sender: FDA-Public Use
  Company Number: US-JNJFOC-20051103643

PATIENT
  Age: 78 Year
  Sex: Male
  Weight: 91 kg

DRUGS (5)
  1. DOXIL [Suspect]
     Indication: B-CELL LYMPHOMA
     Route: 042
  2. RITUXAN [Suspect]
     Indication: B-CELL LYMPHOMA
     Route: 042
  3. CYTOXAN [Suspect]
     Indication: B-CELL LYMPHOMA
     Route: 042
  4. VINCRISTINE [Suspect]
     Indication: B-CELL LYMPHOMA
     Route: 042
  5. PREDNISONE [Suspect]
     Indication: B-CELL LYMPHOMA
     Dosage: DAYS 1-5
     Route: 048

REACTIONS (1)
  - ATRIAL FIBRILLATION [None]
